FAERS Safety Report 22140967 (Version 1)
Quarter: 2023Q1

REPORT INFORMATION
  Report Type: Spontaneous
  Country: US (occurrence: None)
  Receive Date: 20230324
  Receipt Date: 20230324
  Transmission Date: 20230418
  Serious: Yes (Hospitalization)
  Sender: FDA-Public Use
  Company Number: None

PATIENT
  Age: 84 Year
  Sex: Male

DRUGS (7)
  1. ADEMPAS [Suspect]
     Active Substance: RIOCIGUAT
     Indication: Pulmonary hypertension
     Dosage: FREQUENCY : TWICE A DAY;?
     Route: 048
     Dates: start: 20200318
  2. FUROSEMIDE [Concomitant]
  3. APIXABAN [Concomitant]
  4. WIXELA INHUB [Concomitant]
  5. ALBUTEROL HFA [Concomitant]
  6. TYLENOL [Concomitant]
  7. DICLOFENAC SODIUM [Concomitant]
     Active Substance: DICLOFENAC SODIUM

REACTIONS (2)
  - Unevaluable event [None]
  - Acute respiratory failure [None]

NARRATIVE: CASE EVENT DATE: 20230307
